FAERS Safety Report 5158065-8 (Version None)
Quarter: 2006Q4

REPORT INFORMATION
  Report Type: 
  Country: None (occurrence: None)
  Receive Date: 20061113
  Receipt Date: 20061102
  Transmission Date: 20070319
  Serious: Yes (Other)
  Sender: FDA-Public Use
  Company Number: HQWYE502411SEP06

PATIENT
  Age: 37 Year
  Sex: Male

DRUGS (1)
  1. REFACTO [Suspect]
     Indication: FACTOR VIII DEFICIENCY
     Dosage: 2010-2080 IU PER INFUSION (31.4-32.5 IU/KG) THREE TIMES PER WEEK FOR 6 MONTHS FOR 81 EDS INTRAVENOUS
     Route: 042
     Dates: start: 20051220, end: 20060624

REACTIONS (1)
  - FACTOR VIII INHIBITION [None]
